FAERS Safety Report 11678296 (Version 3)
Quarter: 2017Q3

REPORT INFORMATION
  Report Type: Spontaneous
  Country: JP (occurrence: JP)
  Receive Date: 20151028
  Receipt Date: 20170721
  Transmission Date: 20171127
  Serious: Yes (Other)
  Sender: FDA-Public Use
  Company Number: PHJP2015JP018764

PATIENT
  Age: 50 Year
  Sex: Male

DRUGS (4)
  1. AZUNOL                             /00517002/ [Concomitant]
     Indication: PROPHYLAXIS
     Dosage: UNK
     Route: 049
  2. AFINITOR [Suspect]
     Active Substance: EVEROLIMUS
     Indication: BREAST CANCER
     Dosage: UNK
     Route: 048
     Dates: start: 201408, end: 201412
  3. EXEMESTANE. [Suspect]
     Active Substance: EXEMESTANE
     Indication: BREAST CANCER
     Dosage: UNK
     Route: 065
     Dates: start: 201408, end: 201412
  4. XYLOCAINE [Concomitant]
     Active Substance: LIDOCAINE HYDROCHLORIDE
     Indication: PROPHYLAXIS
     Dosage: UNK
     Route: 065

REACTIONS (6)
  - Haemoptysis [Unknown]
  - Metastases to bone [Unknown]
  - Malignant neoplasm progression [Unknown]
  - Angular cheilitis [Unknown]
  - Lung disorder [Unknown]
  - Stomatitis [Unknown]

NARRATIVE: CASE EVENT DATE: 201412
